FAERS Safety Report 4914244-3 (Version None)
Quarter: 2006Q1

REPORT INFORMATION
  Report Type: 
  Country: None (occurrence: None)
  Receive Date: 20060210
  Receipt Date: 20060126
  Transmission Date: 20060701
  Serious: Yes (Hospitalization)
  Sender: FDA-Public Use
  Company Number: 2006P1000071

PATIENT
  Age: 70 Year
  Sex: Male
  Weight: 92 kg

DRUGS (9)
  1. RETEPLASE (RETEPLASE) [Suspect]
     Indication: ACUTE MYOCARDIAL INFARCTION
     Dosage: 5 IU; 1X; IV; SEE IMAGE
     Route: 042
     Dates: start: 20041016, end: 20041016
  2. RETEPLASE (RETEPLASE) [Suspect]
     Indication: ACUTE MYOCARDIAL INFARCTION
     Dosage: 5 IU; 1X; IV; SEE IMAGE
     Route: 042
     Dates: start: 20041016, end: 20041016
  3. ABCIXIMAB (ABCIXIMAB) [Suspect]
     Indication: ACUTE MYOCARDIAL INFARCTION
     Dosage: 11.5 ML; 1X; IV; SEE IMAGE
     Route: 042
     Dates: start: 20041016, end: 20041016
  4. ABCIXIMAB (ABCIXIMAB) [Suspect]
     Indication: ACUTE MYOCARDIAL INFARCTION
     Dosage: 11.5 ML; 1X; IV; SEE IMAGE
     Route: 042
     Dates: start: 20041016, end: 20041016
  5. HEPARIN [Concomitant]
  6. ACETYLSALICYLIC ACID SRT [Concomitant]
  7. BETA BLOCKING AGENTS [Concomitant]
  8. ACE INHIBITOR NOS [Concomitant]
  9. CHOLESTEROL- AND TRIGLYCERIDE REDUCERS [Concomitant]

REACTIONS (1)
  - CORONARY ARTERY STENOSIS [None]
